FAERS Safety Report 23200599 (Version 8)
Quarter: 2025Q3

REPORT INFORMATION
  Report Type: Spontaneous
  Country: US (occurrence: US)
  Receive Date: 20231118
  Receipt Date: 20250822
  Transmission Date: 20251021
  Serious: Yes (Other)
  Sender: TRAVERE THERAPEUTICS
  Company Number: US-TRAVERE-2023TVT00619

PATIENT
  Age: 65 Year
  Sex: Male

DRUGS (2)
  1. FILSPARI [Suspect]
     Active Substance: SPARSENTAN
     Indication: IgA nephropathy
     Dosage: LOT NUMBER: 1976070, EXPIRY DATE: 31-AUG-2025?LOT NUMBER: 1976071, EXPIRY DATE: 31-MAY-2026
     Route: 048
     Dates: start: 20230809
  2. FILSPARI [Suspect]
     Active Substance: SPARSENTAN
     Indication: Chronic kidney disease

REACTIONS (4)
  - Dialysis [Unknown]
  - Asthenia [Unknown]
  - Anaemia [None]
  - Drug ineffective [Unknown]

NARRATIVE: CASE EVENT DATE: 20250101
